FAERS Safety Report 23336052 (Version 2)
Quarter: 2024Q2

REPORT INFORMATION
  Report Type: Report from Study
  Country: AR (occurrence: AR)
  Receive Date: 20231225
  Receipt Date: 20240401
  Transmission Date: 20240716
  Serious: Yes (Hospitalization, Other)
  Sender: FDA-Public Use
  Company Number: AR-002147023-NVSC2023AR093220

PATIENT
  Age: 57 Year
  Sex: Female

DRUGS (1)
  1. KISQALI [Suspect]
     Active Substance: RIBOCICLIB
     Indication: Breast cancer metastatic
     Dosage: 600 MG, QD
     Route: 065
     Dates: start: 20200507

REACTIONS (9)
  - Pneumonia [Unknown]
  - Dengue fever [Unknown]
  - Pain [Unknown]
  - Pyrexia [Unknown]
  - Decreased immune responsiveness [Unknown]
  - Malaise [Unknown]
  - Neuropathy peripheral [Unknown]
  - Spinal cord compression [Unknown]
  - Drug ineffective [Unknown]

NARRATIVE: CASE EVENT DATE: 20230410
